FAERS Safety Report 7490079-5 (Version None)
Quarter: 2011Q2

REPORT INFORMATION
  Report Type: 
  Country: None (occurrence: None)
  Receive Date: 20110519
  Receipt Date: 20101230
  Transmission Date: 20111010
  Serious: Yes (Hospitalization)
  Sender: FDA-Public Use
  Company Number: US-BAYER-201038434NA

PATIENT
  Age: 40 Year
  Sex: Female
  Weight: 73 kg

DRUGS (4)
  1. HYDROXYZINE [Concomitant]
     Indication: CYSTITIS INTERSTITIAL
  2. YAZ [Suspect]
     Indication: CONTRACEPTION
     Dosage: UNK
     Route: 048
     Dates: start: 20070301, end: 20081104
  3. ELMIRON [Concomitant]
     Indication: CYSTITIS INTERSTITIAL
  4. PRILOSEC [Concomitant]

REACTIONS (5)
  - MENTAL DISORDER [None]
  - EMBOLISM VENOUS [None]
  - PORTAL VEIN THROMBOSIS [None]
  - MESENTERIC VEIN THROMBOSIS [None]
  - ABDOMINAL PAIN [None]
